FAERS Safety Report 14670298 (Version 1)
Quarter: 2018Q1

REPORT INFORMATION
  Report Type: Spontaneous
  Country: CA (occurrence: CA)
  Receive Date: 20180322
  Receipt Date: 20180322
  Transmission Date: 20180509
  Serious: Yes (Other)
  Sender: FDA-Public Use
  Company Number: CA-BAYER-2018-051742

PATIENT
  Age: 31 Year
  Sex: Female

DRUGS (2)
  1. MIRENA [Suspect]
     Active Substance: LEVONORGESTREL
     Indication: CONTRACEPTION
     Dosage: UNK
  2. MIRENA [Suspect]
     Active Substance: LEVONORGESTREL
     Indication: CONTRACEPTION
     Dosage: 20 MCG/24HR, CONT
     Route: 015

REACTIONS (27)
  - Blood pressure abnormal [Unknown]
  - Visual impairment [Unknown]
  - Mood swings [Unknown]
  - Platelet disorder [Unknown]
  - Neutropenia [Unknown]
  - Night sweats [Unknown]
  - Weight increased [Unknown]
  - Abdominal distension [Unknown]
  - Dyspareunia [Unknown]
  - Depression [Unknown]
  - Irritability [Unknown]
  - Confusional state [Unknown]
  - Disturbance in attention [Unknown]
  - Loss of libido [Unknown]
  - Myalgia [Unknown]
  - Platelet morphology abnormal [Unknown]
  - Vaginal discharge [Unknown]
  - Back pain [Unknown]
  - Vertigo [Unknown]
  - Abdominal pain [Unknown]
  - Abdominal rigidity [Unknown]
  - Hypertrichosis [Unknown]
  - Leukopenia [Unknown]
  - Loss of personal independence in daily activities [Unknown]
  - Menorrhagia [Unknown]
  - Paralysis [Unknown]
  - Tinnitus [Unknown]
